FAERS Safety Report 23615176 (Version 1)
Quarter: 2024Q1

REPORT INFORMATION
  Report Type: Spontaneous
  Country: ES (occurrence: ES)
  Receive Date: 20240311
  Receipt Date: 20240311
  Transmission Date: 20240410
  Serious: Yes (Other)
  Sender: FDA-Public Use
  Company Number: ES-CELLTRION INC.-2024ES005549

PATIENT

DRUGS (1)
  1. INFLIXIMAB [Suspect]
     Active Substance: INFLIXIMAB
     Indication: Crohn^s disease
     Dosage: 300 MILLIGRAM EVERY 2 MONTHS
     Route: 042
     Dates: start: 2020, end: 20201014

REACTIONS (1)
  - Eczema asteatotic [Unknown]

NARRATIVE: CASE EVENT DATE: 20201020
